FAERS Safety Report 9078540 (Version 1)
Quarter: 2013Q1

REPORT INFORMATION
  Report Type: Report from Study
  Country: CA (occurrence: CA)
  Receive Date: 20130130
  Receipt Date: 20130130
  Transmission Date: 20140127
  Serious: Yes (Hospitalization)
  Sender: FDA-Public Use
  Company Number: CA-JNJFOC-20130112332

PATIENT
  Sex: Male
  Weight: 74 kg

DRUGS (6)
  1. REMICADE [Suspect]
     Indication: CROHN^S DISEASE
     Route: 042
     Dates: start: 201110
  2. METHOTREXATE [Concomitant]
     Route: 065
  3. MEZAVANT [Concomitant]
     Route: 065
  4. GRAVOL [Concomitant]
     Route: 065
  5. CIPRO [Concomitant]
     Route: 065
  6. FLAGYL [Concomitant]
     Route: 065

REACTIONS (1)
  - Pelvic venous thrombosis [Unknown]
